FAERS Safety Report 4829652-9 (Version None)
Quarter: 2005Q4

REPORT INFORMATION
  Report Type: 
  Country: None (occurrence: None)
  Receive Date: 20051116
  Receipt Date: 20031016
  Transmission Date: 20060501
  Serious: Yes (Hospitalization, Disabling)
  Sender: FDA-Public Use
  Company Number: US-MERCK-0310USA01959

PATIENT
  Age: 42 Year
  Sex: Female
  Weight: 80 kg

DRUGS (8)
  1. VIOXX [Suspect]
     Indication: JOINT DISLOCATION
     Route: 048
     Dates: start: 20020222, end: 20020314
  2. VIOXX [Suspect]
     Route: 048
     Dates: start: 20020222, end: 20020314
  3. VIOXX [Suspect]
     Indication: JOINT INJURY
     Route: 048
     Dates: start: 20020222, end: 20020314
  4. VIOXX [Suspect]
     Route: 048
     Dates: start: 20020222, end: 20020314
  5. GLUCOPHAGE XR [Concomitant]
     Route: 048
     Dates: start: 20010701, end: 20010801
  6. GLUCOPHAGE XR [Concomitant]
     Route: 065
     Dates: start: 20010801
  7. GLUCOPHAGE XR [Concomitant]
     Route: 048
     Dates: start: 20020301
  8. LIDOCAINE AND TRIAMCINOLONE ACETONIDE [Concomitant]
     Route: 051
     Dates: start: 20020315, end: 20020315

REACTIONS (22)
  - ANEURYSM [None]
  - CEREBROVASCULAR ACCIDENT [None]
  - CEREBROVASCULAR DISORDER [None]
  - CHEST PAIN [None]
  - DRUG INEFFECTIVE [None]
  - EMOTIONAL DISTRESS [None]
  - GANGLION [None]
  - GASTRIC DISORDER [None]
  - HEADACHE [None]
  - HEMIPARESIS [None]
  - HYPERTENSION [None]
  - INJURY [None]
  - JOINT DISLOCATION [None]
  - LABYRINTHITIS [None]
  - LOWER LIMB FRACTURE [None]
  - OVERDOSE [None]
  - PAIN [None]
  - PATELLOFEMORAL PAIN SYNDROME [None]
  - PHARYNGOLARYNGEAL PAIN [None]
  - PILONIDAL CYST [None]
  - SINUS DISORDER [None]
  - SINUSITIS [None]
